FAERS Safety Report 15934857 (Version 6)
Quarter: 2022Q3

REPORT INFORMATION
  Report Type: Spontaneous
  Country: BR (occurrence: BR)
  Receive Date: 20190207
  Receipt Date: 20220808
  Transmission Date: 20221026
  Serious: Yes (Other)
  Sender: FDA-Public Use
  Company Number: BR-PFIZER INC-2018533781

PATIENT
  Age: 64 Year
  Sex: Female

DRUGS (4)
  1. LORAZEPAM [Suspect]
     Active Substance: LORAZEPAM
     Dosage: 1 MG, 1X/DAY
     Dates: start: 1975
  2. LORAZEPAM [Suspect]
     Active Substance: LORAZEPAM
     Dosage: 2 MG, LORAX 1 MG TWICE A DAY
  3. LORAZEPAM [Suspect]
     Active Substance: LORAZEPAM
     Dosage: 4 MG, UNK (2 TABLETS OF 2MG)
  4. LORAZEPAM [Suspect]
     Active Substance: LORAZEPAM
     Dosage: 4 MG, 2X/DAY (4 TABLETS TWICE A DAY)

REACTIONS (9)
  - Suicidal ideation [Unknown]
  - Product use issue [Unknown]
  - Drug dependence [Unknown]
  - Shock [Unknown]
  - Drug ineffective [Unknown]
  - Feeling abnormal [Not Recovered/Not Resolved]
  - Memory impairment [Unknown]
  - Anxiety [Unknown]
  - Feeling of despair [Unknown]
